FAERS Safety Report 5233576-5 (Version None)
Quarter: 2007Q1

REPORT INFORMATION
  Report Type: 
  Country: None (occurrence: None)
  Receive Date: 20070208
  Receipt Date: 20070130
  Transmission Date: 20070707
  Serious: Yes (Hospitalization)
  Sender: FDA-Public Use
  Company Number: HQWYE540804OCT06

PATIENT
  Sex: Female

DRUGS (6)
  1. ENBREL [Suspect]
     Indication: RHEUMATOID ARTHRITIS
     Route: 058
     Dates: start: 20060627, end: 20060725
  2. DIDRONEL [Concomitant]
     Indication: OSTEOPOROSIS
     Dosage: UNKNOWN
  3. LOXOPROFEN SODIUM [Concomitant]
     Indication: RHEUMATOID ARTHRITIS
     Dosage: UNKNOWN
  4. PIRENZEPINE DIHYDROCHLORIDE [Concomitant]
     Dosage: UNKNOWN
  5. METHOTREXATE [Concomitant]
     Indication: RHEUMATOID ARTHRITIS
     Dosage: 2.5 MG
     Route: 048
     Dates: end: 20060802
  6. RIMATIL [Concomitant]
     Indication: RHEUMATOID ARTHRITIS
     Dosage: UNKNOWN
     Route: 048
     Dates: end: 20060809

REACTIONS (2)
  - PYREXIA [None]
  - SARCOIDOSIS [None]
